FAERS Safety Report 8997197 (Version 1)
Quarter: 2013Q1

REPORT INFORMATION
  Report Type: Spontaneous
  Country: IT (occurrence: IT)
  Receive Date: 20130104
  Receipt Date: 20130104
  Transmission Date: 20140127
  Serious: Yes (Hospitalization)
  Sender: FDA-Public Use
  Company Number: IT-TEVA-378286ISR

PATIENT
  Age: 81 Year
  Sex: Female

DRUGS (9)
  1. FUROSEMIDE [Suspect]
     Dosage: 1 DOSAGE FORMS DAILY;
     Route: 048
     Dates: start: 20111028, end: 20121027
  2. DILTIAZEM [Suspect]
     Dosage: 1 DOSAGE FORMS DAILY;
     Route: 048
     Dates: start: 20111028, end: 20121027
  3. BISOPROLOLO EMIFUMARATO [Suspect]
     Dosage: 1 DOSAGE FORMS DAILY;
     Route: 048
     Dates: start: 20111028, end: 20121027
  4. NITROGLICERINA [Suspect]
     Dosage: 1 DOSAGE FORMS DAILY;
     Route: 062
     Dates: start: 20111028, end: 20121027
  5. EUTIROX [Concomitant]
  6. KCL RETARD [Concomitant]
  7. SIMVASTATINA [Concomitant]
  8. ACIDO ACETILSALICILICO [Concomitant]
  9. CALCITRIOLO [Concomitant]

REACTIONS (1)
  - Syncope [Not Recovered/Not Resolved]
